FAERS Safety Report 24230430 (Version 2)
Quarter: 2025Q2

REPORT INFORMATION
  Report Type: Spontaneous
  Country: CN (occurrence: CN)
  Receive Date: 20240821
  Receipt Date: 20250610
  Transmission Date: 20250717
  Serious: Yes (Hospitalization, Other)
  Sender: RANBAXY
  Company Number: CN-SUN PHARMACEUTICAL INDUSTRIES LTD-2024R1-462272

PATIENT
  Sex: Female
  Weight: 57.5 kg

DRUGS (6)
  1. PALIPERIDONE [Suspect]
     Active Substance: PALIPERIDONE
     Indication: Psychotic symptom
     Dosage: 3 MILLIGRAM, QD
     Route: 048
     Dates: start: 20240716, end: 20240723
  2. PALIPERIDONE [Suspect]
     Active Substance: PALIPERIDONE
     Indication: Depression
     Dosage: 6 MILLIGRAM, QD
     Route: 048
     Dates: start: 20240723, end: 20240806
  3. Yishu [Concomitant]
     Indication: Depression
     Dosage: 5 MILLIGRAM, TID
     Route: 048
     Dates: start: 20240716, end: 20240806
  4. FLUOXETINE HYDROCHLORIDE [Concomitant]
     Active Substance: FLUOXETINE HYDROCHLORIDE
     Indication: Depression
     Dosage: 40 MILLIGRAM, QD
     Route: 048
     Dates: start: 20240718, end: 20240802
  5. LORAZEPAM [Concomitant]
     Active Substance: LORAZEPAM
     Indication: Sleep disorder
     Dosage: 1 MILLIGRAM, QD
     Route: 048
     Dates: start: 20240716, end: 20240806
  6. VITAMIN B6 [Concomitant]
     Active Substance: PYRIDOXINE HYDROCHLORIDE
     Indication: Adjuvant therapy
     Dosage: 10 MILLIGRAM, TID
     Route: 048
     Dates: start: 20240716, end: 20240806

REACTIONS (1)
  - Extrapyramidal disorder [Unknown]
